FAERS Safety Report 11625817 (Version 6)
Quarter: 2015Q4

REPORT INFORMATION
  Report Type: Report from Study
  Country: NL (occurrence: NL)
  Receive Date: 20151013
  Receipt Date: 20151221
  Transmission Date: 20160304
  Serious: Yes (Hospitalization)
  Sender: FDA-Public Use
  Company Number: NL-BAXALTA-2015BLT001626

PATIENT
  Age: 65 Year
  Sex: Female

DRUGS (8)
  1. HYQVIA [Suspect]
     Active Substance: HUMAN IMMUNOGLOBULIN G\HYALURONIDASE RECOMBINANT HUMAN
     Dosage: 30 G, UNK
     Route: 058
     Dates: start: 20151030
  2. HYQVIA [Suspect]
     Active Substance: HUMAN IMMUNOGLOBULIN G\HYALURONIDASE RECOMBINANT HUMAN
     Dosage: 5 G, EVERY 4 WK
     Route: 058
     Dates: start: 20150904
  3. HYQVIA [Suspect]
     Active Substance: HUMAN IMMUNOGLOBULIN G\HYALURONIDASE RECOMBINANT HUMAN
     Dosage: 30 G, UNK
     Route: 065
     Dates: start: 20150807
  4. HYQVIA [Suspect]
     Active Substance: HUMAN IMMUNOGLOBULIN G\HYALURONIDASE RECOMBINANT HUMAN
     Dosage: 5 G, UNK
     Route: 065
     Dates: start: 20150807
  5. HYQVIA [Suspect]
     Active Substance: HUMAN IMMUNOGLOBULIN G\HYALURONIDASE RECOMBINANT HUMAN
     Indication: VASCULITIS
     Dosage: 30 G, EVERY 4 WK
     Route: 058
     Dates: start: 20150904
  6. HYQVIA [Suspect]
     Active Substance: HUMAN IMMUNOGLOBULIN G\HYALURONIDASE RECOMBINANT HUMAN
     Dosage: 5 G, UNK
     Route: 065
     Dates: start: 20150213
  7. HYQVIA [Suspect]
     Active Substance: HUMAN IMMUNOGLOBULIN G\HYALURONIDASE RECOMBINANT HUMAN
     Indication: OFF LABEL USE
     Dosage: UNK
     Route: 065
     Dates: start: 20151002
  8. HYQVIA [Suspect]
     Active Substance: HUMAN IMMUNOGLOBULIN G\HYALURONIDASE RECOMBINANT HUMAN
     Dosage: 5 G, UNK
     Route: 058
     Dates: start: 20151030

REACTIONS (5)
  - Back pain [Recovered/Resolved]
  - Fatigue [Recovered/Resolved]
  - Adverse event [Recovered/Resolved with Sequelae]
  - Diarrhoea [Recovered/Resolved]
  - Influenza like illness [Recovered/Resolved]

NARRATIVE: CASE EVENT DATE: 20150807
